FAERS Safety Report 18824049 (Version 1)
Quarter: 2021Q1

REPORT INFORMATION
  Report Type: Spontaneous
  Country: US (occurrence: US)
  Receive Date: 20210201
  Receipt Date: 20210201
  Transmission Date: 20210419
  Serious: Yes (Other)
  Sender: FDA-Public Use
  Company Number: US-ABBVIE-20K-163-3263385-00

PATIENT
  Sex: Female
  Weight: 68.1 kg

DRUGS (2)
  1. HUMIRA [Suspect]
     Active Substance: ADALIMUMAB
     Indication: CROHN^S DISEASE
     Route: 058
     Dates: start: 2012, end: 201911
  2. PREMARIN [Concomitant]
     Active Substance: ESTROGENS, CONJUGATED
     Indication: HYSTERECTOMY

REACTIONS (3)
  - Lupus-like syndrome [Recovering/Resolving]
  - Joint swelling [Recovering/Resolving]
  - Arthralgia [Recovering/Resolving]

NARRATIVE: CASE EVENT DATE: 2018
